FAERS Safety Report 9855071 (Version 1)
Quarter: 2014Q1

REPORT INFORMATION
  Report Type: Spontaneous
  Country: US (occurrence: US)
  Receive Date: 20140130
  Receipt Date: 20140130
  Transmission Date: 20141002
  Serious: Yes (Hospitalization)
  Sender: FDA-Public Use
  Company Number: US-DRREDDYS-USA/USA/14/0037618

PATIENT
  Age: 56 Year
  Sex: Female
  Weight: 56.4 kg

DRUGS (7)
  1. CARVEDILOL [Suspect]
     Indication: PRODUCT USED FOR UNKNOWN INDICATION
     Route: 065
  2. ISOSORBIDE DINITRATE [Suspect]
     Indication: PRODUCT USED FOR UNKNOWN INDICATION
     Route: 065
  3. LIDOCAINE [Suspect]
     Indication: LOCAL ANAESTHESIA
     Route: 058
  4. CANDESARTAN [Concomitant]
     Indication: PRODUCT USED FOR UNKNOWN INDICATION
     Route: 065
  5. HYDRALAZINE [Concomitant]
     Indication: PRODUCT USED FOR UNKNOWN INDICATION
     Route: 065
  6. MIDAZOLAM [Concomitant]
     Indication: SEDATION
     Route: 042
  7. FENTANYL [Concomitant]
     Indication: SEDATION
     Route: 042

REACTIONS (5)
  - Overdose [Recovered/Resolved]
  - Grand mal convulsion [Recovered/Resolved]
  - Pulseless electrical activity [Recovered/Resolved]
  - Metabolic acidosis [Recovered/Resolved]
  - Respiratory acidosis [Recovered/Resolved]
